FAERS Safety Report 20045830 (Version 1)
Quarter: 2021Q4

REPORT INFORMATION
  Report Type: Spontaneous
  Country: IT (occurrence: IT)
  Receive Date: 20211108
  Receipt Date: 20211108
  Transmission Date: 20220303
  Serious: Yes (Other)
  Sender: FDA-Public Use
  Company Number: IT-MINISAL02-800567

PATIENT
  Age: 40 Year
  Sex: Male
  Weight: 90 kg

DRUGS (2)
  1. GEMCITABINE [Suspect]
     Active Substance: GEMCITABINE
     Indication: Pancreatic carcinoma
     Dosage: 1400 MILLIGRAM, CYCLICAL
     Route: 042
     Dates: start: 20210524
  2. ABRAXANE [Suspect]
     Active Substance: PACLITAXEL
     Indication: Pancreatic carcinoma
     Dosage: 175 MILLIGRAM, CYCLICAL
     Route: 042
     Dates: start: 20210524

REACTIONS (2)
  - Thrombocytopenia [Not Recovered/Not Resolved]
  - Hypertransaminasaemia [Not Recovered/Not Resolved]

NARRATIVE: CASE EVENT DATE: 20211018
